FAERS Safety Report 5695566-8 (Version None)
Quarter: 2008Q2

REPORT INFORMATION
  Report Type: 
  Country: None (occurrence: None)
  Receive Date: 20080407
  Receipt Date: 20080328
  Transmission Date: 20081010
  Serious: Yes (Hospitalization)
  Sender: FDA-Public Use
  Company Number: FR-WYE-G01317008

PATIENT
  Sex: Female

DRUGS (3)
  1. ADVIL [Suspect]
     Indication: PYREXIA
     Dosage: UNKNOWN
     Route: 048
     Dates: start: 20071214, end: 20071219
  2. MUCOMYST [Concomitant]
     Indication: COUGH
     Dosage: UNKNOWN
     Route: 048
     Dates: start: 20071214
  3. DOLIPRANE [Concomitant]
     Dosage: UNKNOWN
     Route: 048
     Dates: start: 20071214

REACTIONS (7)
  - CONDITION AGGRAVATED [None]
  - INFECTION [None]
  - LOBAR PNEUMONIA [None]
  - PLEURAL EFFUSION [None]
  - PNEUMOTHORAX [None]
  - PULMONARY PNEUMATOCELE [None]
  - STREPTOCOCCAL INFECTION [None]
